FAERS Safety Report 7285233-1 (Version None)
Quarter: 2011Q1

REPORT INFORMATION
  Report Type: 
  Country: None (occurrence: None)
  Receive Date: 20110210
  Receipt Date: 20110121
  Transmission Date: 20110831
  Serious: Yes (Hospitalization)
  Sender: FDA-Public Use
  Company Number: US-BAYER-2011-003619

PATIENT
  Sex: Male

DRUGS (3)
  1. SORAFENIB (RAF KINASE INHIBITOR) [Suspect]
     Dosage: 2 DF, BID
  2. SORAFENIB (RAF KINASE INHIBITOR) [Suspect]
     Dosage: 1 DF, BID
     Dates: end: 20110124
  3. SORAFENIB (RAF KINASE INHIBITOR) [Suspect]
     Indication: RENAL CELL CARCINOMA
     Dosage: 1 DF, BID
     Dates: start: 20110103

REACTIONS (11)
  - PYREXIA [None]
  - HOSPITALISATION [None]
  - CHILLS [None]
  - PRURITUS [None]
  - DECREASED APPETITE [None]
  - WEIGHT DECREASED [None]
  - NAUSEA [None]
  - BALANCE DISORDER [None]
  - ASTHENIA [None]
  - RASH GENERALISED [None]
  - RASH PRURITIC [None]
